FAERS Safety Report 24408333 (Version 2)
Quarter: 2024Q4

REPORT INFORMATION
  Report Type: Spontaneous
  Country: JP (occurrence: JP)
  Receive Date: 20241007
  Receipt Date: 20241007
  Transmission Date: 20250114
  Serious: Yes (Other)
  Sender: ALEXION PHARMACEUTICALS
  Company Number: JP-ASTRAZENECA-240104807_013120_P_1

PATIENT
  Age: 80 Year

DRUGS (44)
  1. DURVALUMAB [Suspect]
     Active Substance: DURVALUMAB
     Indication: Hepatocellular carcinoma
     Dosage: 1500 MILLIGRAM, Q8W
  2. DURVALUMAB [Suspect]
     Active Substance: DURVALUMAB
     Dosage: 1500 MILLIGRAM, Q8W
  3. DURVALUMAB [Suspect]
     Active Substance: DURVALUMAB
     Dosage: 1500 MILLIGRAM, Q8W
  4. DURVALUMAB [Suspect]
     Active Substance: DURVALUMAB
     Dosage: 1500 MILLIGRAM, Q8W
  5. DURVALUMAB [Suspect]
     Active Substance: DURVALUMAB
     Dosage: DOSE UNKNOWN
  6. DURVALUMAB [Suspect]
     Active Substance: DURVALUMAB
     Dosage: DOSE UNKNOWN
  7. DURVALUMAB [Suspect]
     Active Substance: DURVALUMAB
     Dosage: DOSE UNKNOWN
  8. DURVALUMAB [Suspect]
     Active Substance: DURVALUMAB
     Dosage: DOSE UNKNOWN
  9. DURVALUMAB [Suspect]
     Active Substance: DURVALUMAB
  10. DURVALUMAB [Suspect]
     Active Substance: DURVALUMAB
  11. DURVALUMAB [Suspect]
     Active Substance: DURVALUMAB
  12. DURVALUMAB [Suspect]
     Active Substance: DURVALUMAB
  13. TREMELIMUMAB [Suspect]
     Active Substance: TREMELIMUMAB
     Indication: Hepatocellular carcinoma
     Dosage: DOSE UNKNOWN
  14. TREMELIMUMAB [Suspect]
     Active Substance: TREMELIMUMAB
     Dosage: DOSE UNKNOWN
  15. TREMELIMUMAB [Suspect]
     Active Substance: TREMELIMUMAB
     Dosage: DOSE UNKNOWN
  16. TREMELIMUMAB [Suspect]
     Active Substance: TREMELIMUMAB
     Dosage: DOSE UNKNOWN
  17. TREMELIMUMAB [Suspect]
     Active Substance: TREMELIMUMAB
     Dosage: DOSE UNKNOWN
  18. TREMELIMUMAB [Suspect]
     Active Substance: TREMELIMUMAB
     Dosage: DOSE UNKNOWN
  19. TREMELIMUMAB [Suspect]
     Active Substance: TREMELIMUMAB
     Dosage: DOSE UNKNOWN
  20. TREMELIMUMAB [Suspect]
     Active Substance: TREMELIMUMAB
     Dosage: DOSE UNKNOWN
  21. TREMELIMUMAB [Suspect]
     Active Substance: TREMELIMUMAB
  22. TREMELIMUMAB [Suspect]
     Active Substance: TREMELIMUMAB
  23. TREMELIMUMAB [Suspect]
     Active Substance: TREMELIMUMAB
  24. TREMELIMUMAB [Suspect]
     Active Substance: TREMELIMUMAB
  25. FAMOTIDINE [Concomitant]
     Active Substance: FAMOTIDINE
     Dosage: DOSE UNKNOWN
     Route: 065
  26. FAMOTIDINE [Concomitant]
     Active Substance: FAMOTIDINE
     Dosage: DOSE UNKNOWN
  27. FAMOTIDINE [Concomitant]
     Active Substance: FAMOTIDINE
     Dosage: DOSE UNKNOWN
     Route: 065
  28. FAMOTIDINE [Concomitant]
     Active Substance: FAMOTIDINE
     Dosage: DOSE UNKNOWN
  29. SENNOSIDES [Concomitant]
     Active Substance: SENNOSIDES
     Dosage: DOSE UNKNOWN
     Route: 065
  30. SENNOSIDES [Concomitant]
     Active Substance: SENNOSIDES
     Dosage: DOSE UNKNOWN
  31. SENNOSIDES [Concomitant]
     Active Substance: SENNOSIDES
     Dosage: DOSE UNKNOWN
     Route: 065
  32. SENNOSIDES [Concomitant]
     Active Substance: SENNOSIDES
     Dosage: DOSE UNKNOWN
  33. DAPRODUSTAT [Concomitant]
     Active Substance: DAPRODUSTAT
     Dosage: DOSE UNKNOWN
     Route: 065
  34. DAPRODUSTAT [Concomitant]
     Active Substance: DAPRODUSTAT
     Dosage: DOSE UNKNOWN
  35. DAPRODUSTAT [Concomitant]
     Active Substance: DAPRODUSTAT
     Dosage: DOSE UNKNOWN
     Route: 065
  36. DAPRODUSTAT [Concomitant]
     Active Substance: DAPRODUSTAT
     Dosage: DOSE UNKNOWN
  37. ELOBIXIBAT [Concomitant]
     Active Substance: ELOBIXIBAT
     Dosage: DOSE UNKNOWN
     Route: 065
  38. ELOBIXIBAT [Concomitant]
     Active Substance: ELOBIXIBAT
     Dosage: DOSE UNKNOWN
  39. ELOBIXIBAT [Concomitant]
     Active Substance: ELOBIXIBAT
     Dosage: DOSE UNKNOWN
     Route: 065
  40. ELOBIXIBAT [Concomitant]
     Active Substance: ELOBIXIBAT
     Dosage: DOSE UNKNOWN
  41. HALCION [Concomitant]
     Active Substance: TRIAZOLAM
     Dosage: DOSE UNKNOWN
     Route: 065
  42. HALCION [Concomitant]
     Active Substance: TRIAZOLAM
     Dosage: DOSE UNKNOWN
  43. HALCION [Concomitant]
     Active Substance: TRIAZOLAM
     Dosage: DOSE UNKNOWN
     Route: 065
  44. HALCION [Concomitant]
     Active Substance: TRIAZOLAM
     Dosage: DOSE UNKNOWN

REACTIONS (1)
  - Agranulocytosis [Recovering/Resolving]
